FAERS Safety Report 23148030 (Version 1)
Quarter: 2023Q4

REPORT INFORMATION
  Report Type: Spontaneous
  Country: US (occurrence: US)
  Receive Date: 20231106
  Receipt Date: 20231106
  Transmission Date: 20240109
  Serious: Yes (Hospitalization)
  Sender: FDA-Public Use
  Company Number: US-STRIDES ARCOLAB LIMITED-2023SP016182

PATIENT
  Sex: Male

DRUGS (15)
  1. URSODIOL [Suspect]
     Active Substance: URSODIOL
     Indication: Jaundice cholestatic
     Dosage: 20 MILLIGRAM/KILOGRAM PER DAY (RECEIVED IN DIVIDED DOSES)
     Route: 065
  2. URSODIOL [Suspect]
     Active Substance: URSODIOL
     Indication: Glucose-6-phosphate dehydrogenase deficiency
  3. VITAMIN A [Suspect]
     Active Substance: VITAMIN A
     Indication: Supplementation therapy
     Dosage: UNK
     Route: 065
  4. VITAMIN A [Suspect]
     Active Substance: VITAMIN A
     Indication: Jaundice cholestatic
  5. VITAMIN A [Suspect]
     Active Substance: VITAMIN A
     Indication: Glucose-6-phosphate dehydrogenase deficiency
  6. VITAMIN E [Suspect]
     Active Substance: .ALPHA.-TOCOPHEROL
     Indication: Supplementation therapy
     Dosage: UNK
     Route: 065
  7. VITAMIN E [Suspect]
     Active Substance: .ALPHA.-TOCOPHEROL
     Indication: Jaundice cholestatic
  8. VITAMIN E [Suspect]
     Active Substance: .ALPHA.-TOCOPHEROL
     Indication: Glucose-6-phosphate dehydrogenase deficiency
  9. VITAMIN D [Suspect]
     Active Substance: VITAMIN D NOS
     Indication: Supplementation therapy
     Dosage: UNK
     Route: 065
  10. VITAMIN D [Suspect]
     Active Substance: VITAMIN D NOS
     Indication: Jaundice cholestatic
  11. VITAMIN D [Suspect]
     Active Substance: VITAMIN D NOS
     Indication: Glucose-6-phosphate dehydrogenase deficiency
  12. VITAMIN K [Concomitant]
     Active Substance: PHYTONADIONE
     Indication: Supplementation therapy
     Dosage: UNK
     Route: 065
  13. VITAMIN K [Concomitant]
     Active Substance: PHYTONADIONE
     Indication: Jaundice cholestatic
     Dosage: UNK
     Route: 042
  14. VITAMIN K [Concomitant]
     Active Substance: PHYTONADIONE
     Indication: Glucose-6-phosphate dehydrogenase deficiency
  15. VITAMIN K [Concomitant]
     Active Substance: PHYTONADIONE
     Indication: International normalised ratio increased

REACTIONS (1)
  - Drug ineffective for unapproved indication [Unknown]
